FAERS Safety Report 9180166 (Version 2)
Quarter: 2013Q2

REPORT INFORMATION
  Report Type: Report from Study
  Country: US (occurrence: US)
  Receive Date: 20130321
  Receipt Date: 20130423
  Transmission Date: 20140414
  Serious: Yes (Hospitalization)
  Sender: FDA-Public Use
  Company Number: US-US-EMD SERONO, INC.-7199976

PATIENT
  Sex: Female
  Weight: 73 kg

DRUGS (1)
  1. REBIF [Suspect]
     Indication: MULTIPLE SCLEROSIS
     Route: 058
     Dates: start: 20030709

REACTIONS (8)
  - Myocardial infarction [Unknown]
  - Coronary artery occlusion [Unknown]
  - Incision site infection [Unknown]
  - Fall [Recovered/Resolved]
  - Restless legs syndrome [Unknown]
  - Sleep disorder [Unknown]
  - Injection site erythema [Unknown]
  - Injection site induration [Unknown]
